FAERS Safety Report 20063873 (Version 2)
Quarter: 2022Q1

REPORT INFORMATION
  Report Type: Spontaneous
  Country: CH (occurrence: CH)
  Receive Date: 20211112
  Receipt Date: 20220113
  Transmission Date: 20220423
  Serious: Yes (Hospitalization, Other)
  Sender: FDA-Public Use
  Company Number: CH-JAZZ-2021-CH-020512

PATIENT
  Age: 62 Year
  Sex: Male

DRUGS (7)
  1. ZEPZELCA [Suspect]
     Active Substance: LURBINECTEDIN
     Indication: Product used for unknown indication
     Dosage: CYCLE 1
  2. ZEPZELCA [Suspect]
     Active Substance: LURBINECTEDIN
     Dosage: CYCLE 2
  3. ZEPZELCA [Suspect]
     Active Substance: LURBINECTEDIN
     Dosage: CYCLE 3
  4. ZEPZELCA [Suspect]
     Active Substance: LURBINECTEDIN
     Dosage: 6 MILLIGRAM, CYCLE 4
     Route: 042
     Dates: start: 20211018, end: 20211018
  5. PANTOPRAZOLE SODIUM [Concomitant]
     Active Substance: PANTOPRAZOLE SODIUM
  6. PRAVASTATIN [Concomitant]
     Active Substance: PRAVASTATIN
  7. EDOXABAN TOSYLATE [Concomitant]
     Active Substance: EDOXABAN TOSYLATE

REACTIONS (3)
  - Erysipelas [Recovered/Resolved]
  - Febrile neutropenia [Recovered/Resolved]
  - Extravasation [Recovered/Resolved]

NARRATIVE: CASE EVENT DATE: 20211001
